FAERS Safety Report 7833746-3 (Version None)
Quarter: 2011Q4

REPORT INFORMATION
  Report Type: 
  Country: None (occurrence: None)
  Receive Date: 20111024
  Receipt Date: 20111012
  Transmission Date: 20120403
  Serious: Yes (Death, Other)
  Sender: FDA-Public Use
  Company Number: FR-ACTELION-A-CH2011-55496

PATIENT
  Age: 82 Year
  Sex: Female

DRUGS (6)
  1. PREVISCAN [Concomitant]
  2. REVATIO [Concomitant]
  3. OXYGEN [Concomitant]
  4. CITALOPRAM HYDROBROMIDE [Concomitant]
  5. ATARAX [Concomitant]
  6. TRACLEER [Suspect]
     Indication: PULMONARY ARTERIAL HYPERTENSION
     Dosage: 125 MG, BID
     Route: 048
     Dates: start: 20100801

REACTIONS (5)
  - LIVER FUNCTION TEST ABNORMAL [None]
  - ALANINE AMINOTRANSFERASE INCREASED [None]
  - OXYGEN SATURATION DECREASED [None]
  - ASPARTATE AMINOTRANSFERASE INCREASED [None]
  - DEATH [None]
